FAERS Safety Report 17325937 (Version 8)
Quarter: 2022Q2

REPORT INFORMATION
  Report Type: Spontaneous
  Country: US (occurrence: US)
  Receive Date: 20200127
  Receipt Date: 20220425
  Transmission Date: 20220720
  Serious: No
  Sender: FDA-Public Use
  Company Number: US-PFIZER INC-2020035593

PATIENT
  Age: 58 Year
  Sex: Male
  Weight: 104.33 kg

DRUGS (4)
  1. PRISTIQ EXTENDED-RELEASE [Suspect]
     Active Substance: DESVENLAFAXINE SUCCINATE
     Indication: Major depression
     Dosage: 200 MG, DAILY (50 MG TABLET 4 TABLETS BY MOUTH DAILY)
     Route: 048
  2. PRISTIQ EXTENDED-RELEASE [Suspect]
     Active Substance: DESVENLAFAXINE SUCCINATE
     Indication: Post-traumatic stress disorder
     Dosage: 300 MG, ONCE A DAY (100 MG TABLET, TAKE 3 (THREE) TABLET BY MOUTH EVERY MORNING)
     Route: 048
  3. PRISTIQ EXTENDED-RELEASE [Suspect]
     Active Substance: DESVENLAFAXINE SUCCINATE
     Dosage: 100 MG, 3X/DAY (TAKE 3 (THREE) TABLET BY MOUTH EVERY MORNING)
     Route: 048
  4. CYMBALTA [Concomitant]
     Active Substance: DULOXETINE HYDROCHLORIDE
     Dosage: UNK

REACTIONS (3)
  - Prescribed overdose [Unknown]
  - Hypoacusis [Unknown]
  - Nervousness [Unknown]
